FAERS Safety Report 6688216-5 (Version None)
Quarter: 2010Q2

REPORT INFORMATION
  Report Type: 
  Country: None (occurrence: None)
  Receive Date: 20100420
  Receipt Date: 20100412
  Transmission Date: 20101027
  Serious: Yes (Other)
  Sender: FDA-Public Use
  Company Number: DE-TEVA-230946ISR

PATIENT
  Sex: Female

DRUGS (2)
  1. COPAXONE [Suspect]
     Indication: MULTIPLE SCLEROSIS
     Route: 058
     Dates: start: 20090301, end: 20100301
  2. COPAXONE [Concomitant]

REACTIONS (2)
  - NECROSIS [None]
  - SKIN DISCOLOURATION [None]
